FAERS Safety Report 4387926-2 (Version None)
Quarter: 2004Q2

REPORT INFORMATION
  Report Type: 
  Country: None (occurrence: None)
  Receive Date: 20040607
  Receipt Date: 20031216
  Transmission Date: 20050107
  Serious: Yes (Other)
  Sender: FDA-Public Use
  Company Number: 354375

PATIENT
  Age: 18 Year
  Sex: Male
  Weight: 26.7622 kg

DRUGS (2)
  1. ACCUTANE [Suspect]
     Indication: ACNE
     Dosage: 60 MG DAILY 2 PER DAY ORAL
     Route: 048
     Dates: start: 20030820, end: 20031115
  2. NA [Concomitant]
     Dosage: NA

REACTIONS (5)
  - ABDOMINAL PAIN [None]
  - COLITIS ULCERATIVE [None]
  - CONSTIPATION [None]
  - DIARRHOEA [None]
  - RECTAL HAEMORRHAGE [None]
